FAERS Safety Report 8590157 (Version 3)
Quarter: 2012Q4

REPORT INFORMATION
  Report Type: 
  Country: DE (occurrence: DE)
  Receive Date: 20120601
  Receipt Date: 20121112
  Transmission Date: 20130627
  Serious: Yes (Death, Other)
  Sender: FDA-Public Use
  Company Number: DE-GENZYME-CAMP-1002264

PATIENT
  Age: 68 None
  Sex: Male
  Weight: 63 kg

DRUGS (1)
  1. MABCAMPATH [Suspect]
     Indication: CHRONIC LEUKAEMIA
     Dosage: 30 mg, 3x/w
     Route: 065
     Dates: start: 20120130, end: 201206

REACTIONS (12)
  - Dysphagia [Fatal]
  - Peripheral coldness [Not Recovered/Not Resolved]
  - Immune system disorder [Unknown]
  - Asthenia [Not Recovered/Not Resolved]
  - Lymphadenopathy [Not Recovered/Not Resolved]
  - Pneumonia [Fatal]
  - Chills [Not Recovered/Not Resolved]
  - Pyrexia [Not Recovered/Not Resolved]
  - Abdominal pain upper [Not Recovered/Not Resolved]
  - Nausea [Not Recovered/Not Resolved]
  - Abdominal pain upper [Not Recovered/Not Resolved]
  - Infusion related reaction [Unknown]
